FAERS Safety Report 9648902 (Version 1)
Quarter: 2013Q4

REPORT INFORMATION
  Report Type: Spontaneous
  Country: US (occurrence: US)
  Receive Date: 20131028
  Receipt Date: 20131028
  Transmission Date: 20140711
  Serious: Yes (Hospitalization)
  Sender: FDA-Public Use
  Company Number: US-BAYER-2013-127684

PATIENT
  Age: 60 Year
  Sex: Male

DRUGS (3)
  1. CIPROFLOXACIN [Suspect]
     Indication: SERRATIA INFECTION
  2. CEFTRIAXONE [Suspect]
     Indication: SERRATIA INFECTION
  3. ERTAPENEM [Suspect]
     Indication: SERRATIA INFECTION

REACTIONS (1)
  - Pathogen resistance [Recovered/Resolved]
